FAERS Safety Report 4448307-6 (Version None)
Quarter: 2004Q3

REPORT INFORMATION
  Report Type: 
  Country: None (occurrence: None)
  Receive Date: 20040910
  Receipt Date: 20040928
  Transmission Date: 20050211
  Serious: Yes (Hospitalization)
  Sender: FDA-Public Use
  Company Number: 04-00543

PATIENT
  Age: 34 Year
  Sex: Male

DRUGS (5)
  1. HALOPERIDOL LACTATE [Suspect]
     Indication: SCHIZOPHRENIA
  2. CLOZAPINE [Concomitant]
  3. BENZTROPINE MESYLATE [Concomitant]
  4. OLANZAPINE [Concomitant]
  5. PROPRANOLOL [Concomitant]

REACTIONS (12)
  - BLOOD PRESSURE SYSTOLIC INCREASED [None]
  - BODY TEMPERATURE INCREASED [None]
  - EOSINOPHILIA [None]
  - FUNGUS SEROLOGY TEST POSITIVE [None]
  - HEART RATE INCREASED [None]
  - LETHARGY [None]
  - MENINGITIS [None]
  - PLEURAL EFFUSION [None]
  - PNEUMONIA [None]
  - RASH ERYTHEMATOUS [None]
  - RESPIRATORY RATE INCREASED [None]
  - WHITE BLOOD CELL COUNT INCREASED [None]
